FAERS Safety Report 6992103-2 (Version None)
Quarter: 2010Q3

REPORT INFORMATION
  Report Type: 
  Country: None (occurrence: None)
  Receive Date: 20100915
  Receipt Date: 20100915
  Transmission Date: 20110219
  Serious: Yes (Life-Threatening, Hospitalization)
  Sender: FDA-Public Use
  Company Number: None

PATIENT
  Age: 49 Year
  Sex: Female
  Weight: 68.0396 kg

DRUGS (1)
  1. AVELOX [Suspect]
     Indication: SINUSITIS
     Dosage: 1 PO
     Route: 048
     Dates: start: 20100907, end: 20100907

REACTIONS (5)
  - ANAPHYLACTIC SHOCK [None]
  - DIZZINESS [None]
  - ERYTHEMA [None]
  - HYPOAESTHESIA [None]
  - VOMITING [None]
